FAERS Safety Report 15330136 (Version 1)
Quarter: 2018Q3

REPORT INFORMATION
  Report Type: Spontaneous
  Country: US (occurrence: US)
  Receive Date: 20180824
  Receipt Date: 20180824
  Transmission Date: 20181010
  Serious: Yes (Hospitalization)
  Sender: FDA-Public Use
  Company Number: None

PATIENT
  Age: 87 Year
  Sex: Male
  Weight: 76 kg

DRUGS (1)
  1. NIVOLUMAB [Suspect]
     Active Substance: NIVOLUMAB
     Indication: CHOLANGIOCARCINOMA
     Dosage: ?          OTHER FREQUENCY:Q3WEEKS;?
     Route: 041
     Dates: start: 20170206, end: 20180702

REACTIONS (4)
  - Hypotension [None]
  - Urinary tract infection [None]
  - Aortic aneurysm [None]
  - Fall [None]

NARRATIVE: CASE EVENT DATE: 20180820
